FAERS Safety Report 5908441-8 (Version None)
Quarter: 2008Q3

REPORT INFORMATION
  Report Type: 
  Country: None (occurrence: None)
  Receive Date: 20080930
  Receipt Date: 20080915
  Transmission Date: 20090109
  Serious: Yes (Other)
  Sender: FDA-Public Use
  Company Number: 2008BI024051

PATIENT
  Age: 61 Year
  Sex: Female
  Weight: 73.9363 kg

DRUGS (19)
  1. TYSABRI [Suspect]
     Indication: MULTIPLE SCLEROSIS
     Dosage: 300 MG; QM; IV
     Route: 042
     Dates: start: 20071220
  2. PLAVIX [Concomitant]
  3. TOPROL-XL [Concomitant]
  4. SPIRONOLACTONE [Concomitant]
  5. PROVIGIL [Concomitant]
  6. ULTRAM ER [Concomitant]
  7. PROTONIX [Concomitant]
  8. CARDIAZEM [Concomitant]
  9. ZOCOR [Concomitant]
  10. CALTRATE +D [Concomitant]
  11. STOOL SOFTENER [Concomitant]
  12. CYMBALTA [Concomitant]
  13. XYZAL [Concomitant]
  14. CLONAZEPAM [Concomitant]
  15. POTASSIUM CHLORIDE [Concomitant]
  16. OSTEOPOROSIS INFUSION [Concomitant]
  17. FENTANYL TRANSDERMAL SYSTEM [Concomitant]
  18. PROVENTIL [Concomitant]
  19. REBIF [Concomitant]

REACTIONS (4)
  - CATHETER SITE PAIN [None]
  - CELLULITIS [None]
  - CHEST PAIN [None]
  - INJECTION SITE ABSCESS [None]
